FAERS Safety Report 18549849 (Version 2)
Quarter: 2020Q4

REPORT INFORMATION
  Report Type: Spontaneous
  Country: IT (occurrence: IT)
  Receive Date: 20201126
  Receipt Date: 20201207
  Transmission Date: 20210114
  Serious: Yes (Life-Threatening)
  Sender: FDA-Public Use
  Company Number: IT-PFIZER INC-2020466440

PATIENT
  Age: 75 Year
  Sex: Female

DRUGS (2)
  1. MIDAZOLAM. [Suspect]
     Active Substance: MIDAZOLAM
     Indication: SEDATION
     Dosage: 2 MG, 1X/DAY
     Route: 040
     Dates: start: 20201014, end: 20201015
  2. FENTANEST [Suspect]
     Active Substance: FENTANYL CITRATE
     Dosage: UNK
     Route: 040
     Dates: start: 20201014, end: 20201015

REACTIONS (5)
  - Rash [Recovering/Resolving]
  - Hypotension [Recovering/Resolving]
  - Urticaria [Recovering/Resolving]
  - Dyspnoea [Recovering/Resolving]
  - Oropharyngeal discomfort [Recovering/Resolving]

NARRATIVE: CASE EVENT DATE: 20201014
